FAERS Safety Report 7334501-3 (Version None)
Quarter: 2011Q1

REPORT INFORMATION
  Report Type: 
  Country: None (occurrence: None)
  Receive Date: 20110307
  Receipt Date: 20110207
  Transmission Date: 20110831
  Serious: Yes (Other)
  Sender: FDA-Public Use
  Company Number: US-BAYER-201020836NA

PATIENT
  Sex: Female
  Weight: 45.351 kg

DRUGS (11)
  1. YAZ [Suspect]
     Indication: ACNE
  2. YAZ [Suspect]
     Indication: PREMENSTRUAL SYNDROME
  3. YASMIN [Suspect]
     Indication: PREMENSTRUAL SYNDROME
  4. YASMIN [Suspect]
     Indication: ACNE
  5. ASCORBIC ACID [Concomitant]
     Dosage: 400 MG, TID
  6. DEPO-PROVERA [Concomitant]
     Indication: CONTRACEPTION
  7. YASMIN [Suspect]
     Indication: CONTRACEPTION
     Dosage: UNK UNK, UNK
     Route: 048
     Dates: start: 20020101, end: 20060901
  8. FEOSOL [Concomitant]
     Dosage: 320 MG, UNK
  9. IBUPROFEN [Concomitant]
  10. UNCODEABLE ^UNCLASSIFIABLE^ [Concomitant]
     Indication: ORAL CONTRACEPTION
  11. YAZ [Suspect]
     Indication: CONTRACEPTION
     Dosage: UNK UNK, UNK
     Route: 048
     Dates: start: 20020101, end: 20060901

REACTIONS (17)
  - VOMITING [None]
  - DIARRHOEA [None]
  - ANXIETY [None]
  - PREGNANCY ON ORAL CONTRACEPTIVE [None]
  - BILE DUCT STONE [None]
  - DEPRESSION [None]
  - CONSTIPATION [None]
  - NO ADVERSE EVENT [None]
  - ABDOMINAL DISTENSION [None]
  - ABDOMINAL TENDERNESS [None]
  - ABDOMINAL PAIN UPPER [None]
  - NAUSEA [None]
  - CHOLECYSTITIS ACUTE [None]
  - CHOLECYSTITIS CHRONIC [None]
  - POST CHOLECYSTECTOMY SYNDROME [None]
  - DYSPEPSIA [None]
  - BILIARY COLIC [None]
